FAERS Safety Report 7985118-9 (Version None)
Quarter: 2011Q4

REPORT INFORMATION
  Report Type: 
  Country: None (occurrence: None)
  Receive Date: 20111216
  Receipt Date: 20111212
  Transmission Date: 20120403
  Serious: Yes (Death, Other)
  Sender: FDA-Public Use
  Company Number: PHHY2010CA85387

PATIENT
  Sex: Male

DRUGS (3)
  1. SANDOSTATIN [Suspect]
     Indication: DIARRHOEA
     Dosage: 2 ML, Q4H
     Route: 058
     Dates: start: 20100601
  2. SANDOSTATIN LAR [Suspect]
     Indication: DIARRHOEA
     Dosage: 20 MG, EVERY 4 WEEKS
     Route: 030
     Dates: end: 20111121
  3. CHEMOTHERAPEUTICS NOS [Concomitant]

REACTIONS (4)
  - ABDOMINAL NEOPLASM [None]
  - DRUG INEFFECTIVE [None]
  - DEATH [None]
  - DIARRHOEA [None]
